FAERS Safety Report 5918301-4 (Version None)
Quarter: 2008Q4

REPORT INFORMATION
  Report Type: 
  Country: None (occurrence: None)
  Receive Date: 20081010
  Receipt Date: 20080627
  Transmission Date: 20090506
  Serious: Yes (Other)
  Sender: FDA-Public Use
  Company Number: 6043921

PATIENT
  Sex: Male

DRUGS (1)
  1. CYANOKIT [Suspect]
     Indication: GAS POISONING

REACTIONS (3)
  - DRUG TOXICITY [None]
  - HYPERTENSION [None]
  - PULMONARY OEDEMA [None]
